FAERS Safety Report 13474918 (Version 2)
Quarter: 2018Q1

REPORT INFORMATION
  Report Type: Spontaneous
  Country: US (occurrence: US)
  Receive Date: 20170424
  Receipt Date: 20180315
  Transmission Date: 20180508
  Serious: No
  Sender: FDA-Public Use
  Company Number: US-009507513-1704USA003964

PATIENT
  Sex: Female

DRUGS (1)
  1. NEXPLANON [Suspect]
     Active Substance: ETONOGESTREL
     Indication: CONTRACEPTION
     Dosage: 1 ROD, UNK
     Route: 059
     Dates: end: 20170403

REACTIONS (3)
  - Implant site induration [Unknown]
  - Implant site swelling [Unknown]
  - Implant site erythema [Unknown]

NARRATIVE: CASE EVENT DATE: 201704
